FAERS Safety Report 5302145-0 (Version None)
Quarter: 2007Q2

REPORT INFORMATION
  Report Type: 
  Country: None (occurrence: None)
  Receive Date: 20070416
  Receipt Date: 20070416
  Transmission Date: 20071010
  Serious: Yes (Hospitalization)
  Sender: FDA-Public Use
  Company Number: None

PATIENT
  Age: 65 Year
  Sex: Female
  Weight: 78.4723 kg

DRUGS (3)
  1. GEMCITABINE HCL [Suspect]
     Indication: LUNG CARCINOMA CELL TYPE UNSPECIFIED STAGE IV
     Dosage: 1545 MG Q 2 WEEKS
     Dates: start: 20061010, end: 20061010
  2. BEVACIZUMAB [Suspect]
     Dosage: 790 MG Q 2 WEEKS
     Dates: start: 20061211, end: 20061211
  3. PREMETREXED [Suspect]
     Dosage: 515 MG Q 2 WEEK
     Dates: start: 20061004, end: 20061211

REACTIONS (1)
  - DIVERTICULITIS [None]
